FAERS Safety Report 6558953-1 (Version None)
Quarter: 2010Q1

REPORT INFORMATION
  Report Type: 
  Country: None (occurrence: None)
  Receive Date: 20100129
  Receipt Date: 20100119
  Transmission Date: 20100710
  Serious: Yes (Hospitalization, Congenital Anomaly)
  Sender: FDA-Public Use
  Company Number: GB-ELI_LILLY_AND_COMPANY-GB201001004501

PATIENT
  Sex: Female

DRUGS (4)
  1. BYETTA [Suspect]
     Dosage: 10 UG, 2/D
     Route: 064
     Dates: end: 20090612
  2. METFORMIN [Concomitant]
     Dosage: UNK, UNK
     Route: 064
     Dates: end: 20090612
  3. INSULIN [Concomitant]
     Route: 064
  4. LABETALOL HCL [Concomitant]
     Route: 064

REACTIONS (3)
  - DRUG EXPOSURE DURING PREGNANCY [None]
  - INTESTINAL MALROTATION [None]
  - PREMATURE BABY [None]
